FAERS Safety Report 20957441 (Version 4)
Quarter: 2022Q4

REPORT INFORMATION
  Report Type: Report from Study
  Country: US (occurrence: US)
  Receive Date: 20220614
  Receipt Date: 20221111
  Transmission Date: 20230112
  Serious: Yes (Other)
  Sender: FDA-Public Use
  Company Number: US-ABBVIE-22K-163-4395158-00

PATIENT
  Age: 81 Year
  Sex: Male
  Weight: 77.11 kg

DRUGS (4)
  1. IBRUTINIB [Suspect]
     Active Substance: IBRUTINIB
     Indication: B-cell small lymphocytic lymphoma
     Route: 048
     Dates: start: 20210912
  2. LISINOPRIL [Concomitant]
     Active Substance: LISINOPRIL
     Indication: Product used for unknown indication
     Dosage: 20
     Route: 048
     Dates: start: 20170101
  3. LEVOTHYROXINE [Concomitant]
     Active Substance: LEVOTHYROXINE
     Indication: Product used for unknown indication
     Dosage: 25
     Route: 048
     Dates: start: 20210601
  4. AMLODIPINE [Concomitant]
     Active Substance: AMLODIPINE BESYLATE
     Indication: Product used for unknown indication
     Dosage: 5
     Route: 048
     Dates: start: 20201009

REACTIONS (10)
  - Inguinal hernia strangulated [Recovered/Resolved]
  - Loss of personal independence in daily activities [Unknown]
  - Procedural pain [Recovered/Resolved]
  - Appendix cancer [Unknown]
  - Loss of personal independence in daily activities [Recovered/Resolved]
  - Balance disorder [Unknown]
  - Fall [Unknown]
  - Pain [Unknown]
  - Drug ineffective [Unknown]
  - Platelet count decreased [Unknown]

NARRATIVE: CASE EVENT DATE: 20211101
